FAERS Safety Report 15454078 (Version 4)
Quarter: 2018Q4

REPORT INFORMATION
  Report Type: Spontaneous
  Country: JP (occurrence: JP)
  Receive Date: 20181002
  Receipt Date: 20181203
  Transmission Date: 20190204
  Serious: Yes (Other)
  Sender: FDA-Public Use
  Company Number: JP-ROCHE-2191629

PATIENT
  Age: 72 Year
  Sex: Male

DRUGS (11)
  1. LUCENTIS [Suspect]
     Active Substance: RANIBIZUMAB
     Dosage: SEVENTH FOR LEFT EYE
     Route: 031
  2. LUCENTIS [Suspect]
     Active Substance: RANIBIZUMAB
     Dosage: EIGHTH FOR LEFT EYE
     Route: 031
     Dates: start: 20110927
  3. LUCENTIS [Suspect]
     Active Substance: RANIBIZUMAB
     Dosage: SECOND LEFT EYE
     Route: 031
  4. EYLEA [Concomitant]
     Active Substance: AFLIBERCEPT
     Route: 050
     Dates: start: 20130904
  5. LUCENTIS [Suspect]
     Active Substance: RANIBIZUMAB
     Dosage: THIRD LEFT EYE
     Route: 031
  6. LUCENTIS [Suspect]
     Active Substance: RANIBIZUMAB
     Dosage: SECOND FOR RIGHT, FOURTH FOR LEFT EYE
     Route: 031
     Dates: start: 20101130
  7. LUCENTIS [Suspect]
     Active Substance: RANIBIZUMAB
     Dosage: NINTH FOR LEFT EYE
     Route: 031
     Dates: start: 20130710
  8. LUCENTIS [Suspect]
     Active Substance: RANIBIZUMAB
     Indication: POLYPOIDAL CHOROIDAL VASCULOPATHY
     Dosage: FIRST LEFT EYE
     Route: 031
     Dates: start: 20100824
  9. LUCENTIS [Suspect]
     Active Substance: RANIBIZUMAB
     Indication: AGE-RELATED MACULAR DEGENERATION
     Dosage: FIRST RIGHT EYE
     Route: 031
  10. LUCENTIS [Suspect]
     Active Substance: RANIBIZUMAB
     Dosage: SIXTH FOR LEFT EYE
     Route: 031
  11. LUCENTIS [Suspect]
     Active Substance: RANIBIZUMAB
     Dosage: FIFTH FOR LEFT EYE
     Route: 031

REACTIONS (2)
  - Serous retinal detachment [Unknown]
  - Retinal haemorrhage [Recovered/Resolved]

NARRATIVE: CASE EVENT DATE: 20120225
